FAERS Safety Report 5831229-3 (Version None)
Quarter: 2008Q3

REPORT INFORMATION
  Report Type: 
  Country: None (occurrence: None)
  Receive Date: 20080801
  Receipt Date: 20071101
  Transmission Date: 20090109
  Serious: No
  Sender: FDA-Public Use
  Company Number: US-BRISTOL-MYERS SQUIBB COMPANY-13966791

PATIENT
  Sex: Female
  Weight: 56 kg

DRUGS (1)
  1. COUMADIN [Suspect]
     Indication: ATRIAL FIBRILLATION
     Dosage: FOR THE LAST COUPLE OF MONTHS 2.5 MG X 4 DAYS AND 3.75 MG X 3 DAYS.

REACTIONS (3)
  - CHILLS [None]
  - DECREASED APPETITE [None]
  - FEELING COLD [None]
